FAERS Safety Report 5654399-9 (Version None)
Quarter: 2008Q1

REPORT INFORMATION
  Report Type: 
  Country: None (occurrence: None)
  Receive Date: 20080305
  Receipt Date: 20080221
  Transmission Date: 20080703
  Serious: Yes (Hospitalization)
  Sender: FDA-Public Use
  Company Number: 154580

PATIENT
  Age: 43 Year
  Sex: Female
  Weight: 81.6475 kg

DRUGS (2)
  1. AVONEX [Suspect]
     Indication: MULTIPLE SCLEROSIS
     Dosage: 30 UG; QW; IM
     Route: 030
     Dates: start: 20000518
  2. WELLBUTRIN [Concomitant]

REACTIONS (8)
  - ARTHRALGIA [None]
  - CONDITION AGGRAVATED [None]
  - DEPRESSION [None]
  - DRUG DOSE OMISSION [None]
  - GAIT DISTURBANCE [None]
  - HYPERTENSION [None]
  - MULTIPLE SCLEROSIS [None]
  - THINKING ABNORMAL [None]
